FAERS Safety Report 22201981 (Version 1)
Quarter: 2023Q2

REPORT INFORMATION
  Report Type: Report from Study
  Country: AT (occurrence: AT)
  Receive Date: 20230412
  Receipt Date: 20230412
  Transmission Date: 20230722
  Serious: Yes (Hospitalization)
  Sender: FDA-Public Use
  Company Number: AT-ALNYLAM PHARMACEUTICALS, INC.-ALN-2023-001620

PATIENT

DRUGS (6)
  1. ONPATTRO [Suspect]
     Active Substance: PATISIRAN SODIUM
     Indication: Product used for unknown indication
     Dosage: 20 UNK, Q3W (STARTED HOSPITAL TREATMENT)
     Route: 042
     Dates: start: 20190501
  2. ONPATTRO [Suspect]
     Active Substance: PATISIRAN SODIUM
     Dosage: 20 UNK, Q3W (HOME TREATMENT STARTED).
     Route: 042
     Dates: start: 20200403
  3. ONPATTRO [Suspect]
     Active Substance: PATISIRAN SODIUM
     Dosage: 20 UNK, Q3W
     Route: 042
     Dates: start: 20230315
  4. ATROPINE [Concomitant]
     Active Substance: ATROPINE
     Indication: Product used for unknown indication
     Dosage: UNK, QD
     Route: 047
  5. VOLTAREN [Concomitant]
     Active Substance: DICLOFENAC SODIUM
     Indication: Product used for unknown indication
     Dosage: UNK, TID (FOR 3 WEEKS)
     Route: 047
  6. TOBRADEX [Concomitant]
     Active Substance: DEXAMETHASONE\TOBRAMYCIN
     Indication: Product used for unknown indication
     Dosage: UNK, QID
     Route: 047

REACTIONS (1)
  - Macular degeneration [Recovering/Resolving]

NARRATIVE: CASE EVENT DATE: 20230328
